FAERS Safety Report 22635151 (Version 1)
Quarter: 2023Q2

REPORT INFORMATION
  Report Type: Spontaneous
  Country: IT (occurrence: IT)
  Receive Date: 20230623
  Receipt Date: 20230623
  Transmission Date: 20230722
  Serious: Yes (Other)
  Sender: FDA-Public Use
  Company Number: IT-MINISAL02-917386

PATIENT
  Age: 68 Year
  Sex: Female

DRUGS (4)
  1. GEMCITABINE [Suspect]
     Active Substance: GEMCITABINE
     Indication: Non-Hodgkin^s lymphoma
     Dosage: DOSAGE: 1250 UNIT OF MEASUREMENT: MILLIGRAMS FREQUENCY OF ADMINISTRATION: CYCLIC ROUTE OF ADMINISTRA
     Route: 040
  2. ABRAXANE [Suspect]
     Active Substance: PACLITAXEL
     Indication: Non-Hodgkin^s lymphoma
     Dosage: DOSAGE: 155  OF MEASUREMENT: MILLIGRAMS FREQUENCY OF ADMINISTRATION: CYCLIC ROUTE OF ADMINISTRATION:
     Route: 040
     Dates: start: 20221205
  3. PANTOPRAZOLE SODIUM [Concomitant]
     Active Substance: PANTOPRAZOLE SODIUM
     Indication: Product used for unknown indication
     Dosage: DOSAGE: 40 UNIT OF MEASURE: MILLIGRAMS ROUTE OF ADMINISTRATION: ORAL
     Route: 065
  4. SODIO BICARBONATO [Concomitant]
     Indication: Product used for unknown indication
     Dosage: DOSAGE: 1000 UNIT OF MEASUREMENT: MILLIGRAMS ROUTE OF ADMINISTRATION: ORAL
     Route: 065

REACTIONS (1)
  - Neutropenia [Unknown]

NARRATIVE: CASE EVENT DATE: 20230314
